FAERS Safety Report 7788098-4 (Version None)
Quarter: 2011Q3

REPORT INFORMATION
  Report Type: 
  Country: None (occurrence: None)
  Receive Date: 20110929
  Receipt Date: 20110929
  Transmission Date: 20111222
  Serious: Yes (Other)
  Sender: FDA-Public Use
  Company Number: None

PATIENT
  Age: 61 Year
  Sex: Male
  Weight: 92.9874 kg

DRUGS (2)
  1. ERYTHROMYCIN [Suspect]
     Dates: start: 20110824
  2. ERYTHROMYCIN [Suspect]
     Indication: EYE INJURY
     Dosage: SMALL AMOUNT 4X DAILY OINTMENT
     Dates: start: 20110823

REACTIONS (2)
  - PAIN [None]
  - EYE IRRITATION [None]
